FAERS Safety Report 24016960 (Version 1)
Quarter: 2024Q2

REPORT INFORMATION
  Report Type: Spontaneous
  Country: US (occurrence: US)
  Receive Date: 20240626
  Receipt Date: 20240626
  Transmission Date: 20240715
  Serious: Yes (Hospitalization, Other)
  Sender: FDA-Public Use
  Company Number: US-SLATERUN-2024SRLIT00096

PATIENT
  Age: 54 Year
  Sex: Female

DRUGS (8)
  1. BUPROPION [Suspect]
     Active Substance: BUPROPION\BUPROPION HYDROCHLORIDE
     Indication: Depression
     Route: 065
  2. PAROXETINE [Suspect]
     Active Substance: PAROXETINE
     Indication: Depression
     Route: 065
  3. METHYLENE BLUE [Suspect]
     Active Substance: METHYLENE BLUE
     Indication: Methaemoglobinaemia
     Route: 042
  4. RITUXIMAB [Concomitant]
     Active Substance: RITUXIMAB
     Indication: Diffuse large B-cell lymphoma
     Route: 065
  5. DEXAMETHASONE [Concomitant]
     Active Substance: DEXAMETHASONE
     Indication: Diffuse large B-cell lymphoma
     Route: 065
  6. CYTARABINE [Concomitant]
     Active Substance: CYTARABINE
     Indication: Diffuse large B-cell lymphoma
     Route: 065
  7. OXALIPLATIN [Concomitant]
     Active Substance: OXALIPLATIN
     Indication: Diffuse large B-cell lymphoma
     Route: 065
  8. DAPSONE [Concomitant]
     Active Substance: DAPSONE
     Indication: Diffuse large B-cell lymphoma
     Route: 065

REACTIONS (2)
  - Serotonin syndrome [Recovered/Resolved]
  - Drug interaction [Unknown]
